FAERS Safety Report 12488655 (Version 3)
Quarter: 2017Q1

REPORT INFORMATION
  Report Type: Report from Study
  Country: FR (occurrence: FR)
  Receive Date: 20160622
  Receipt Date: 20170216
  Transmission Date: 20170428
  Serious: Yes (Hospitalization)
  Sender: FDA-Public Use
  Company Number: FR-NOVOPROD-484440

PATIENT
  Age: 24 Year
  Sex: Female
  Weight: 81 kg

DRUGS (33)
  1. NOVORAPID [Suspect]
     Active Substance: INSULIN ASPART
     Dosage: 50 IU, QD
     Route: 058
  2. LEVOTHYROX [Concomitant]
     Active Substance: LEVOTHYROXINE
     Indication: THYROID DISORDER
     Dosage: UNK
     Route: 065
     Dates: start: 20120208
  3. MAGNESIUM [Concomitant]
     Active Substance: MAGNESIUM
     Indication: PROPHYLAXIS
     Dosage: UNK
     Dates: start: 20160208
  4. NEOSYNEPHRINE [Concomitant]
     Active Substance: PHENYLEPHRINE HYDROCHLORIDE
     Indication: PROPHYLAXIS
     Dosage: UNK
     Dates: start: 20160922, end: 20160922
  5. DEXAMETHASONE. [Concomitant]
     Active Substance: DEXAMETHASONE
     Indication: PROPHYLAXIS
     Dosage: UNK
     Route: 065
     Dates: start: 20160922, end: 20160922
  6. ACUPAN [Concomitant]
     Active Substance: NEFOPAM HYDROCHLORIDE
     Indication: PROPHYLAXIS
     Dosage: UNK
     Route: 065
     Dates: start: 20160922, end: 20160922
  7. LEVEMIR [Suspect]
     Active Substance: INSULIN DETEMIR
     Dosage: 60 IU, QD
     Route: 058
  8. ZOPHREN                            /00955301/ [Concomitant]
     Active Substance: ONDANSETRON
     Indication: PROPHYLAXIS
     Dosage: UNK
     Route: 065
     Dates: start: 20160922, end: 20160922
  9. NOVORAPID [Suspect]
     Active Substance: INSULIN ASPART
     Dosage: UNK
     Route: 058
     Dates: start: 20160202
  10. KETOPROFENE                        /00321701/ [Concomitant]
     Active Substance: KETOPROFEN
     Indication: PROPHYLAXIS
     Dosage: UNK
     Route: 065
     Dates: start: 20160922
  11. UVEDOSE [Concomitant]
     Active Substance: CHOLECALCIFEROL
     Dosage: UNK
     Dates: start: 20160319, end: 20160319
  12. VITAMIN C [Concomitant]
     Active Substance: ASCORBIC ACID
     Indication: PROPHYLAXIS
     Dosage: UNK
     Dates: start: 20160208
  13. ASPEGIC [Concomitant]
     Active Substance: ASPIRIN DL-LYSINE
     Indication: PROPHYLAXIS
     Dosage: UNK
     Dates: start: 20160316, end: 20160917
  14. SYNTOCINON [Concomitant]
     Active Substance: OXYTOCIN
     Indication: CAESAREAN SECTION
     Dosage: UNK
     Route: 065
     Dates: start: 20160922, end: 20160922
  15. LEVOBUPIVACAINE [Concomitant]
     Active Substance: LEVOBUPIVACAINE
     Indication: SPINAL ANAESTHESIA
     Dosage: UNK
     Route: 065
     Dates: start: 20160922, end: 20160922
  16. PARACETAMOL [Concomitant]
     Active Substance: ACETAMINOPHEN
     Indication: PROPHYLAXIS
     Dosage: UNK
     Route: 065
     Dates: start: 20160922, end: 20160922
  17. NOVORAPID [Suspect]
     Active Substance: INSULIN ASPART
     Dosage: 78 IU, QD
     Route: 058
     Dates: start: 20160509
  18. LEVEMIR [Suspect]
     Active Substance: INSULIN DETEMIR
     Indication: TYPE 1 DIABETES MELLITUS
     Dosage: 54 IU, QD
     Route: 058
     Dates: start: 20160208, end: 20160509
  19. LANTUS [Suspect]
     Active Substance: INSULIN GLARGINE
     Indication: TYPE 1 DIABETES MELLITUS
     Dosage: 34 IU, QD
     Route: 058
     Dates: start: 201204, end: 20160203
  20. SPECIAFOLDINE [Concomitant]
     Active Substance: FOLIC ACID
     Indication: PROPHYLAXIS
     Dosage: UNK
     Dates: start: 20160208, end: 20160408
  21. UVEDOSE [Concomitant]
     Active Substance: CHOLECALCIFEROL
     Indication: PROPHYLAXIS
     Dosage: UNK
     Dates: start: 20160220, end: 20160220
  22. RINGER LACTATE                     /01126301/ [Concomitant]
     Indication: CAESAREAN SECTION
     Dosage: UNK
     Route: 065
     Dates: start: 20160922, end: 20160922
  23. DOLIPRANE [Concomitant]
     Active Substance: ACETAMINOPHEN
     Indication: PROPHYLAXIS
     Dosage: UNK
     Route: 065
     Dates: start: 20160925
  24. NOVORAPID [Suspect]
     Active Substance: INSULIN ASPART
     Indication: TYPE 1 DIABETES MELLITUS
     Dosage: 54 IU, QD
     Route: 058
     Dates: start: 201204, end: 20160509
  25. NOVORAPID [Suspect]
     Active Substance: INSULIN ASPART
     Dosage: 38 IU, QD
     Route: 058
  26. LEVEMIR [Suspect]
     Active Substance: INSULIN DETEMIR
     Dosage: 52 IU, QD
     Route: 058
  27. CEFAZOLINE [Concomitant]
     Active Substance: CEFAZOLIN SODIUM
     Indication: PROPHYLAXIS
     Dosage: UNK
     Route: 065
     Dates: start: 20160922, end: 20160922
  28. NICOPATCH [Concomitant]
     Active Substance: NICOTINE
     Indication: EX-TOBACCO USER
     Dosage: UNK
     Route: 065
     Dates: start: 20160208
  29. NICOPASS                           /01033301/ [Concomitant]
     Indication: EX-TOBACCO USER
     Dosage: UNK
     Dates: start: 20160208
  30. TARDYFERON B9                      /00023601/ [Concomitant]
     Active Substance: FERROUS SULFATE\FOLIC ACID
     Indication: PROPHYLAXIS
     Dosage: UNK
     Route: 065
     Dates: start: 20160925
  31. UVEDOSE [Concomitant]
     Active Substance: CHOLECALCIFEROL
     Dosage: UNK
     Dates: start: 20160305, end: 20160305
  32. EPHEDRINE. [Concomitant]
     Active Substance: EPHEDRINE
     Indication: PROPHYLAXIS
     Dosage: UNK
     Route: 065
     Dates: start: 20160922, end: 20160922
  33. SUFENTANIL [Concomitant]
     Active Substance: SUFENTANIL
     Indication: SPINAL ANAESTHESIA
     Dosage: UNK
     Route: 065
     Dates: start: 20160922, end: 20160922

REACTIONS (5)
  - Hospitalisation [Recovered/Resolved]
  - Therapeutic procedure [Recovering/Resolving]
  - Injection site inflammation [Recovered/Resolved]
  - Diabetes mellitus inadequate control [Recovered/Resolved]
  - Exposure during pregnancy [Recovered/Resolved]

NARRATIVE: CASE EVENT DATE: 20160102
